FAERS Safety Report 9202686 (Version 2)
Quarter: 2013Q2

REPORT INFORMATION
  Report Type: Spontaneous
  Country: GB (occurrence: GB)
  Receive Date: 20130401
  Receipt Date: 20130401
  Transmission Date: 20140414
  Serious: Yes (Hospitalization, Other)
  Sender: FDA-Public Use
  Company Number: GB-PFIZER INC-GBWYE676718MAY05

PATIENT
  Age: 49 Year
  Sex: Male

DRUGS (6)
  1. PARACETAMOL [Suspect]
     Dosage: 24 DF, UNK
     Route: 048
     Dates: start: 20020818
  2. IBUPROFEN [Suspect]
     Indication: ILL-DEFINED DISORDER
     Dosage: 3-5 DOSEFORMS
     Route: 048
     Dates: start: 20020818
  3. PAROXETINE [Suspect]
     Indication: ILL-DEFINED DISORDER
     Dosage: 20 MG, UNK
     Dates: start: 20020429
  4. PREDNISOLONE [Suspect]
     Dosage: OVERDOSE, UP TO 10 DOSEFORMS
     Dates: start: 20020818
  5. ETHANOL [Suspect]
     Dosage: TOO MUCH TO DRINK
     Route: 048
     Dates: start: 20020818
  6. SEROXAT [Suspect]
     Indication: ILL-DEFINED DISORDER
     Dosage: 20 MG, UNK
     Dates: start: 20020429

REACTIONS (12)
  - Intentional overdose [Unknown]
  - Suicide attempt [Unknown]
  - Suicidal ideation [Unknown]
  - Aggression [Unknown]
  - Anxiety [Unknown]
  - Emotional disorder [Unknown]
  - Irritability [Unknown]
  - Nightmare [Unknown]
  - Disturbance in attention [Unknown]
  - Abnormal dreams [Unknown]
  - Withdrawal syndrome [Unknown]
  - Abnormal behaviour [None]
